FAERS Safety Report 4513202-0 (Version None)
Quarter: 2004Q4

REPORT INFORMATION
  Report Type: 
  Country: None (occurrence: None)
  Receive Date: 20041124
  Receipt Date: 20041105
  Transmission Date: 20050328
  Serious: Yes (Hospitalization)
  Sender: FDA-Public Use
  Company Number: USA041080997

PATIENT
  Age: 75 Year
  Sex: Female

DRUGS (2)
  1. FORTEO [Suspect]
     Indication: OSTEOPOROSIS
     Dates: start: 20040518, end: 20041006
  2. COUMADIN [Concomitant]

REACTIONS (8)
  - CONSTIPATION [None]
  - DIFFICULTY IN WALKING [None]
  - EATING DISORDER [None]
  - HAEMORRHAGE [None]
  - HYPOTONIA [None]
  - KIDNEY INFECTION [None]
  - PAIN [None]
  - PHARMACEUTICAL PRODUCT COMPLAINT [None]
